FAERS Safety Report 11627918 (Version 1)
Quarter: 2015Q4

REPORT INFORMATION
  Report Type: Spontaneous
  Country: US (occurrence: None)
  Receive Date: 20151013
  Receipt Date: 20151013
  Transmission Date: 20160304
  Serious: No
  Sender: FDA-Public Use
  Company Number: None

PATIENT
  Sex: Male
  Weight: 39.1 kg

DRUGS (6)
  1. RISPERDONE (GENERIC) [Suspect]
     Active Substance: RISPERIDONE
     Indication: ATTENTION DEFICIT/HYPERACTIVITY DISORDER
     Route: 048
  2. ADDERALL XR [Concomitant]
     Active Substance: AMPHETAMINE ASPARTATE\AMPHETAMINE SULFATE\DEXTROAMPHETAMINE SACCHARATE\DEXTROAMPHETAMINE SULFATE
  3. RISPERDAL [Concomitant]
     Active Substance: RISPERIDONE
  4. BENADRYL [Concomitant]
     Active Substance: DIPHENHYDRAMINE HYDROCHLORIDE
  5. ADDERALL [Concomitant]
     Active Substance: AMPHETAMINE ASPARTATE\AMPHETAMINE SULFATE\DEXTROAMPHETAMINE SACCHARATE\DEXTROAMPHETAMINE SULFATE
  6. INTUNIV [Concomitant]
     Active Substance: GUANFACINE HYDROCHLORIDE

REACTIONS (5)
  - Therapeutic response changed [None]
  - Psychomotor hyperactivity [None]
  - Aggression [None]
  - Agitation [None]
  - Product substitution issue [None]

NARRATIVE: CASE EVENT DATE: 2010
